FAERS Safety Report 20395419 (Version 1)
Quarter: 2022Q1

REPORT INFORMATION
  Report Type: Spontaneous
  Country: CN (occurrence: CN)
  Receive Date: 20220130
  Receipt Date: 20220130
  Transmission Date: 20220424
  Serious: Yes (Other)
  Sender: FDA-Public Use
  Company Number: CN-BoehringerIngelheim-2022-BI-150253

PATIENT
  Age: 78 Year
  Sex: Male

DRUGS (3)
  1. PRADAXA [Suspect]
     Active Substance: DABIGATRAN ETEXILATE MESYLATE
     Indication: Anticoagulant therapy
     Route: 048
     Dates: start: 20210120, end: 20220109
  2. ATORVASTATIN [Concomitant]
     Active Substance: ATORVASTATIN
     Indication: Product used for unknown indication
  3. Isosorbide Mononitrate Sustained-release Tablets [Concomitant]
     Indication: Product used for unknown indication
     Dosage: SUSTAINED RELEASE TABLETS

REACTIONS (4)
  - Petechiae [Recovering/Resolving]
  - Coagulation time prolonged [Recovering/Resolving]
  - Haemorrhage subcutaneous [Recovering/Resolving]
  - Skin disorder [Recovering/Resolving]

NARRATIVE: CASE EVENT DATE: 20220109
